FAERS Safety Report 7271811-2 (Version None)
Quarter: 2011Q1

REPORT INFORMATION
  Report Type: 
  Country: None (occurrence: None)
  Receive Date: 20110203
  Receipt Date: 20110124
  Transmission Date: 20110831
  Serious: Yes (Other)
  Sender: FDA-Public Use
  Company Number: US-JNJFOC-20110106496

PATIENT
  Age: 82 Year
  Sex: Female
  Weight: 62.6 kg

DRUGS (8)
  1. VITAMIN E (TOCOPHERYL ACETATE) [Concomitant]
     Indication: PRODUCT USED FOR UNKNOWN INDICATION
     Dosage: FOR MANY YEARS
     Route: 065
  2. VITAMIN B [Concomitant]
     Indication: PRODUCT USED FOR UNKNOWN INDICATION
     Dosage: FOR MANY YEARS
     Route: 065
  3. EXTRA STRENGTH TYLENOL [Suspect]
     Indication: DISCOMFORT
     Dosage: 1000MG AFTER BREAKFAST
     Route: 048
  4. EXTRA STRENGTH TYLENOL [Suspect]
     Route: 048
  5. TUMS [Concomitant]
     Indication: GASTROINTESTINAL DISORDER THERAPY
     Dosage: FOR MANY YEARS
     Route: 065
  6. OTHER THERAPEUTIC MEDICATION [Concomitant]
     Indication: FLATULENCE
     Dosage: FOR  MANY YEARS
     Route: 065
  7. TUMS [Concomitant]
     Indication: MINERAL SUPPLEMENTATION
     Dosage: FOR MANY YEARS
     Route: 065
  8. GLUCOSAMINE [Concomitant]
     Indication: SCOLIOSIS
     Dosage: FOR MANY YEARS
     Route: 065

REACTIONS (2)
  - AMNESIA [None]
  - CONFUSIONAL STATE [None]
